FAERS Safety Report 11513567 (Version 1)
Quarter: 2015Q3

REPORT INFORMATION
  Report Type: Spontaneous
  Country: US (occurrence: US)
  Receive Date: 20150903
  Receipt Date: 20150903
  Transmission Date: 20151125
  Serious: No
  Sender: FDA-Public Use
  Company Number: US-ELI_LILLY_AND_COMPANY-US201210008871

PATIENT
  Age: 51 Year

DRUGS (1)
  1. CYMBALTA [Suspect]
     Active Substance: DULOXETINE HYDROCHLORIDE
     Indication: POST-TRAUMATIC STRESS DISORDER
     Dosage: 60 MG, QD
     Dates: start: 201012

REACTIONS (6)
  - Drug withdrawal syndrome [Unknown]
  - Off label use [Unknown]
  - Dizziness [Unknown]
  - Tinnitus [Unknown]
  - Fatigue [Unknown]
  - Headache [Unknown]
